FAERS Safety Report 17780570 (Version 2)
Quarter: 2020Q2

REPORT INFORMATION
  Report Type: Report from Study
  Country: None (occurrence: RO)
  Receive Date: 20200514
  Receipt Date: 20200518
  Transmission Date: 20200714
  Serious: Yes (Death, Other)
  Sender: FDA-Public Use
  Company Number: RO-ABBVIE-20K-135-3402680-00

PATIENT
  Age: 73 Year
  Sex: Male

DRUGS (1)
  1. DUODOPA [Suspect]
     Active Substance: CARBIDOPA\LEVODOPA
     Indication: PARKINSON^S DISEASE
     Dosage: DM=5.00,DC=3.00CED=1.00,NRED=0;DMN=0.00, DCN=0.00,EDN=0.00,NREDN=3,STRENGTH:20 MG/ML5MG/ML
     Route: 050
     Dates: start: 20191127, end: 20200512

REACTIONS (3)
  - Somnolence [Not Recovered/Not Resolved]
  - Unresponsive to stimuli [Unknown]
  - Cardio-respiratory arrest [Fatal]

NARRATIVE: CASE EVENT DATE: 20200512
